FAERS Safety Report 5519850-3 (Version None)
Quarter: 2007Q4

REPORT INFORMATION
  Report Type: 
  Country: None (occurrence: None)
  Receive Date: 20071116
  Receipt Date: 20070918
  Transmission Date: 20080405
  Serious: No
  Sender: FDA-Public Use
  Company Number: A0682747A

PATIENT
  Age: 71 Year
  Sex: Female

DRUGS (9)
  1. COREG CR [Suspect]
     Dosage: 40MG PER DAY
     Route: 048
     Dates: start: 20070401
  2. LANOXIN [Concomitant]
  3. LASIX [Concomitant]
  4. MOTRIN [Concomitant]
  5. VALIUM [Concomitant]
  6. VITAMINS [Concomitant]
  7. LACTAID [Concomitant]
  8. CALCIUM [Concomitant]
  9. ARTHRITIS MEDICATION [Concomitant]

REACTIONS (8)
  - ARTHRITIS [None]
  - CHILLS [None]
  - HOT FLUSH [None]
  - LIP SWELLING [None]
  - PAIN [None]
  - PHOTOSENSITIVITY REACTION [None]
  - SUNBURN [None]
  - VISION BLURRED [None]
